FAERS Safety Report 6235830-7 (Version None)
Quarter: 2009Q2

REPORT INFORMATION
  Report Type: 
  Country: None (occurrence: None)
  Receive Date: 20090617
  Receipt Date: 20090617
  Transmission Date: 20091009
  Serious: No
  Sender: FDA-Public Use
  Company Number: None

PATIENT
  Age: 45 Year
  Sex: Male
  Weight: 81.6475 kg

DRUGS (1)
  1. ZICAM COLD REMEDY ORAL SPRAY FULL STRENGTH AS PACKAGED ZICAM LLC, MATR [Suspect]
     Indication: NASOPHARYNGITIS
     Dosage: 4 ORAL SPRAYS EVERY 3 HOURS BUCCAL
     Route: 002
     Dates: start: 20050101

REACTIONS (2)
  - AGEUSIA [None]
  - ANOSMIA [None]
